FAERS Safety Report 5749810-9 (Version None)
Quarter: 2008Q2

REPORT INFORMATION
  Report Type: 
  Country: None (occurrence: None)
  Receive Date: 20080522
  Receipt Date: 20080522
  Transmission Date: 20081010
  Serious: Yes (Other)
  Sender: FDA-Public Use
  Company Number: None

PATIENT
  Sex: Male

DRUGS (10)
  1. REVLIMID [Suspect]
     Indication: MULTIPLE MYELOMA
     Dosage: 10MG DAILY PO   10MG EVERY OTHER DAY PO
     Route: 048
  2. REVLIMID [Suspect]
     Indication: MULTIPLE MYELOMA
     Dosage: 10MG DAILY PO   10MG EVERY OTHER DAY PO
     Route: 048
  3. DEXAMETHASONE TAB [Concomitant]
  4. METOPROLOL TARTRATE [Concomitant]
  5. HYDROCHLOROTHIAZIDE [Concomitant]
  6. MELPHALAN [Concomitant]
  7. ASPIRIN [Concomitant]
  8. OMEPRAZOLE [Concomitant]
  9. LOVASTATIN [Concomitant]
  10. TIMOLOL MALEATE [Concomitant]

REACTIONS (6)
  - DYSGEUSIA [None]
  - HAEMATOCRIT DECREASED [None]
  - HAEMOGLOBIN S DECREASED [None]
  - NEUTROPENIA [None]
  - PRURITUS [None]
  - RASH [None]
